FAERS Safety Report 14778961 (Version 4)
Quarter: 2018Q3

REPORT INFORMATION
  Report Type: Spontaneous
  Country: DE (occurrence: DE)
  Receive Date: 20180419
  Receipt Date: 20180810
  Transmission Date: 20181010
  Serious: Yes (Hospitalization, Other)
  Sender: FDA-Public Use
  Company Number: PHHY2018DE066192

PATIENT
  Age: 10 Year
  Sex: Female
  Weight: 21.6 kg

DRUGS (4)
  1. EXJADE [Suspect]
     Active Substance: DEFERASIROX
     Dosage: 450 MG, UNK
     Route: 065
     Dates: start: 20171110, end: 20180228
  2. EXJADE [Suspect]
     Active Substance: DEFERASIROX
     Indication: THALASSAEMIA BETA
     Dosage: 450 MG, QD
     Route: 065
     Dates: start: 20100317, end: 20180309
  3. EXJADE [Suspect]
     Active Substance: DEFERASIROX
     Indication: THALASSAEMIA
     Dosage: 360 MG, UNK
     Route: 065
     Dates: start: 20161116, end: 20171110
  4. EXJADE [Suspect]
     Active Substance: DEFERASIROX
     Dosage: 540 MG, UNK
     Route: 065
     Dates: start: 20180228, end: 20180329

REACTIONS (12)
  - Colitis [Not Recovered/Not Resolved]
  - Abdominal pain upper [Recovering/Resolving]
  - Influenza [Not Recovered/Not Resolved]
  - Abdominal pain upper [Recovered/Resolved]
  - Cough [Not Recovered/Not Resolved]
  - Intestinal haemorrhage [Recovering/Resolving]
  - Haematochezia [Recovered/Resolved]
  - Nausea [Recovering/Resolving]
  - Headache [Not Recovered/Not Resolved]
  - Oropharyngeal pain [Not Recovered/Not Resolved]
  - Haematochezia [Recovering/Resolving]
  - Abdominal pain [Unknown]

NARRATIVE: CASE EVENT DATE: 20180118
